FAERS Safety Report 4688604-2 (Version None)
Quarter: 2005Q2

REPORT INFORMATION
  Report Type: 
  Country: None (occurrence: None)
  Receive Date: 20050609
  Receipt Date: 20050609
  Transmission Date: 20051028
  Serious: Yes (Life-Threatening, Hospitalization)
  Sender: FDA-Public Use
  Company Number: None

PATIENT
  Sex: Female
  Weight: 68.5 kg

DRUGS (12)
  1. AVASTIN [Suspect]
     Indication: COLORECTAL CANCER METASTATIC
     Dosage: 320 MG IV Q 2WK
     Route: 042
     Dates: start: 20050427
  2. AVASTIN [Suspect]
     Indication: COLORECTAL CANCER METASTATIC
     Dosage: 320 MG IV Q 2WK
     Route: 042
     Dates: start: 20050511
  3. AVASTIN [Suspect]
     Indication: COLORECTAL CANCER METASTATIC
     Dosage: 320 MG IV Q 2WK
     Route: 042
     Dates: start: 20050525
  4. FLUOROURACIL [Concomitant]
  5. LEUCOVORIN CALCIUM [Concomitant]
  6. OXALIPLATIN [Concomitant]
  7. CARDURA [Concomitant]
  8. ONDANSETRON [Concomitant]
  9. FOSINOPRIL SODIUM [Concomitant]
  10. METOCLOPRAMIDE [Concomitant]
  11. LANSOPRAZOLE [Concomitant]
  12. LOPRESSOR [Concomitant]

REACTIONS (8)
  - ASTHENIA [None]
  - ATRIAL FIBRILLATION [None]
  - DIARRHOEA [None]
  - FATIGUE [None]
  - HYPOTENSION [None]
  - LARGE INTESTINE PERFORATION [None]
  - NAUSEA [None]
  - VOMITING [None]
